FAERS Safety Report 10767385 (Version 1)
Quarter: 2015Q1

REPORT INFORMATION
  Report Type: Report from Study
  Country: IN (occurrence: IN)
  Receive Date: 20150205
  Receipt Date: 20150205
  Transmission Date: 20150721
  Serious: Yes (Other)
  Sender: FDA-Public Use
  Company Number: IN-MYLANLABS-2015M1003104

PATIENT

DRUGS (2)
  1. LEVOFLOXACIN. [Suspect]
     Active Substance: LEVOFLOXACIN
     Indication: BACTERIAL INFECTION
     Route: 042
  2. PIPERACILLIN [Suspect]
     Active Substance: PIPERACILLIN
     Indication: BACTERIAL INFECTION
     Route: 042

REACTIONS (1)
  - Status epilepticus [Unknown]
